FAERS Safety Report 7710609-5 (Version None)
Quarter: 2011Q3

REPORT INFORMATION
  Report Type: 
  Country: None (occurrence: None)
  Receive Date: 20110825
  Receipt Date: 20110818
  Transmission Date: 20111222
  Serious: Yes (Other)
  Sender: FDA-Public Use
  Company Number: US-PFIZER INC-2007036930

PATIENT
  Sex: Female

DRUGS (4)
  1. NEURONTIN [Suspect]
     Indication: ARTHRITIS
  2. NEURONTIN [Suspect]
     Indication: CARDIAC DISORDER
  3. NEURONTIN [Suspect]
     Indication: NERVE INJURY
     Dosage: UNK
     Dates: start: 19870101, end: 20080101
  4. NEURONTIN [Suspect]
     Indication: DIABETES MELLITUS

REACTIONS (6)
  - HEADACHE [None]
  - AMNESIA [None]
  - DEPRESSION [None]
  - SUICIDAL IDEATION [None]
  - DRUG INEFFECTIVE FOR UNAPPROVED INDICATION [None]
  - THINKING ABNORMAL [None]
